FAERS Safety Report 4342066-3 (Version None)
Quarter: 2004Q2

REPORT INFORMATION
  Report Type: 
  Country: None (occurrence: None)
  Receive Date: 20040415
  Receipt Date: 20040405
  Transmission Date: 20050107
  Serious: Yes (Hospitalization)
  Sender: FDA-Public Use
  Company Number: US071608

PATIENT
  Age: 60 Year
  Sex: Female

DRUGS (2)
  1. ARANESP [Suspect]
     Indication: ANAEMIA OF MALIGNANT DISEASE
     Dosage: 1 IN 2 WEEKS
     Dates: end: 20040316
  2. DOXORUBICIN HCL [Concomitant]

REACTIONS (2)
  - ARTHRITIS [None]
  - HYPERHIDROSIS [None]
